FAERS Safety Report 20632942 (Version 1)
Quarter: 2022Q1

REPORT INFORMATION
  Report Type: Spontaneous
  Country: US (occurrence: US)
  Receive Date: 20220324
  Receipt Date: 20220324
  Transmission Date: 20220423
  Serious: Yes (Other)
  Sender: FDA-Public Use
  Company Number: US-GLAXOSMITHKLINE-US2022GSK051620

PATIENT
  Sex: Male

DRUGS (12)
  1. RANITIDINE [Suspect]
     Active Substance: RANITIDINE
     Indication: Gastrooesophageal reflux disease
     Dosage: 75 MG, PERIODS OF NON-USE (AT LEAST 3 MONTHS WITHOUT USE)
     Route: 065
     Dates: start: 198306, end: 201911
  2. RANITIDINE [Suspect]
     Active Substance: RANITIDINE
     Indication: Dyspepsia
     Dosage: 150 MG, PERIODS OF NON-USE (AT LEAST 3 MONTHS WITHOUT USE)
     Route: 065
     Dates: start: 198306, end: 201911
  3. RANITIDINE [Suspect]
     Active Substance: RANITIDINE
     Indication: Gastric ulcer
  4. RANITIDINE [Suspect]
     Active Substance: RANITIDINE
     Indication: Intestinal ulcer
  5. RANITIDINE [Suspect]
     Active Substance: RANITIDINE
     Indication: Oesophagitis
  6. RANITIDINE [Suspect]
     Active Substance: RANITIDINE
     Indication: Ulcer haemorrhage
  7. RANITIDINE [Suspect]
     Active Substance: RANITIDINE
     Indication: Gastrooesophageal reflux disease
     Dosage: 75 MG, PERIODS OF NON-USE (AT LEAST 3 MONTHS WITHOUT USE)
     Route: 065
     Dates: start: 198306, end: 201911
  8. RANITIDINE [Suspect]
     Active Substance: RANITIDINE
     Indication: Dyspepsia
     Dosage: 150 MG, PERIODS OF NON-USE (AT LEAST 3 MONTHS WITHOUT USE)
     Route: 065
     Dates: start: 198306, end: 201911
  9. RANITIDINE [Suspect]
     Active Substance: RANITIDINE
     Indication: Gastric ulcer
  10. RANITIDINE [Suspect]
     Active Substance: RANITIDINE
     Indication: Intestinal ulcer
  11. RANITIDINE [Suspect]
     Active Substance: RANITIDINE
     Indication: Oesophagitis
  12. RANITIDINE [Suspect]
     Active Substance: RANITIDINE
     Indication: Ulcer haemorrhage

REACTIONS (1)
  - Prostate cancer [Unknown]
